FAERS Safety Report 8586269 (Version 5)
Quarter: 2016Q2

REPORT INFORMATION
  Report Type: Report from Study
  Country: BR (occurrence: BR)
  Receive Date: 20120530
  Receipt Date: 20160607
  Transmission Date: 20160815
  Serious: Yes (Hospitalization, Other)
  Sender: FDA-Public Use
  Company Number: BR-ROCHE-743999

PATIENT
  Age: 65 Year
  Sex: Female
  Weight: 96 kg

DRUGS (12)
  1. SERTRALINE [Concomitant]
     Active Substance: SERTRALINE HYDROCHLORIDE
     Route: 065
  2. ACETYLSALICYLIC ACID [Concomitant]
     Active Substance: ASPIRIN
  3. MABTHERA [Suspect]
     Active Substance: RITUXIMAB
     Route: 042
     Dates: start: 20100401, end: 20150407
  4. MABTHERA [Suspect]
     Active Substance: RITUXIMAB
     Route: 042
  5. LOSARTAN. [Concomitant]
     Active Substance: LOSARTAN
     Route: 065
  6. MABTHERA [Suspect]
     Active Substance: RITUXIMAB
     Route: 042
  7. TOFRANIL [Concomitant]
     Active Substance: IMIPRAMINE HYDROCHLORIDE
  8. MABTHERA [Suspect]
     Active Substance: RITUXIMAB
     Indication: VASCULITIS
     Route: 042
  9. MABTHERA [Suspect]
     Active Substance: RITUXIMAB
     Indication: RHEUMATOID ARTHRITIS
     Dosage: DATE OF LATEST INFUSION : 21/OCT/2013
     Route: 042
     Dates: start: 20100415, end: 201011
  10. METFORMIN [Concomitant]
     Active Substance: METFORMIN HYDROCHLORIDE
     Route: 065
  11. BENERVA [Concomitant]
     Active Substance: THIAMINE
     Route: 065
  12. RIVOTRIL [Concomitant]
     Active Substance: CLONAZEPAM
     Route: 065

REACTIONS (25)
  - Gastrointestinal disorder [Unknown]
  - Diabetes mellitus [Not Recovered/Not Resolved]
  - Pain in extremity [Recovered/Resolved]
  - Vasculitis [Recovering/Resolving]
  - Visual impairment [Recovered/Resolved]
  - Pain in extremity [Recovered/Resolved]
  - Lipoma [Recovered/Resolved]
  - Renal pain [Recovered/Resolved]
  - Impaired healing [Recovering/Resolving]
  - Platelet count decreased [Not Recovered/Not Resolved]
  - Haemorrhage [Unknown]
  - Cystitis noninfective [Unknown]
  - Headache [Recovered/Resolved]
  - Urinary tract infection [Recovered/Resolved]
  - Red blood cell abnormality [Not Recovered/Not Resolved]
  - Hepatic cirrhosis [Not Recovered/Not Resolved]
  - Dizziness [Recovered/Resolved]
  - Weight increased [Recovered/Resolved]
  - Renal cyst [Unknown]
  - Cardiac disorder [Recovered/Resolved]
  - Fatigue [Not Recovered/Not Resolved]
  - Erythema [Not Recovered/Not Resolved]
  - Pruritus [Not Recovered/Not Resolved]
  - Body height decreased [Recovered/Resolved]
  - Weight decreased [Not Recovered/Not Resolved]

NARRATIVE: CASE EVENT DATE: 201011
